FAERS Safety Report 6319082-5 (Version None)
Quarter: 2009Q3

REPORT INFORMATION
  Report Type: 
  Country: None (occurrence: None)
  Receive Date: 20090821
  Receipt Date: 20080731
  Transmission Date: 20100115
  Serious: No
  Sender: FDA-Public Use
  Company Number: US-ABBOTT-08P-163-0467715-00

PATIENT
  Sex: Male

DRUGS (6)
  1. NIASPAN [Suspect]
     Indication: BLOOD CHOLESTEROL INCREASED
     Dosage: DAILY
     Route: 048
  2. NIASPAN [Suspect]
     Dosage: DAILY
     Route: 048
     Dates: start: 20080601
  3. NIASPAN [Suspect]
     Route: 048
  4. CLOPIDOGREL [Concomitant]
     Indication: CORONARY ARTERY DISEASE
  5. METOPROLOL TARTRATE [Concomitant]
     Indication: CORONARY ARTERY DISEASE
  6. ASPIRIN [Concomitant]
     Indication: CORONARY ARTERY DISEASE

REACTIONS (3)
  - FLUSHING [None]
  - HEADACHE [None]
  - NAUSEA [None]
